FAERS Safety Report 12381728 (Version 1)
Quarter: 2016Q2

REPORT INFORMATION
  Report Type: Spontaneous
  Country: US (occurrence: US)
  Receive Date: 20160518
  Receipt Date: 20160518
  Transmission Date: 20160815
  Serious: No
  Sender: FDA-Public Use
  Company Number: PHEH2016US007339

PATIENT
  Age: 72 Year
  Sex: Male
  Weight: 133 kg

DRUGS (1)
  1. SANDOSTATIN LAR DEPOT [Suspect]
     Active Substance: OCTREOTIDE ACETATE
     Indication: RENAL CANCER METASTATIC
     Dosage: 30 MG, QMO
     Route: 030
     Dates: start: 20131107

REACTIONS (2)
  - Product quality issue [Unknown]
  - Wrong technique in product usage process [Recovered/Resolved]

NARRATIVE: CASE EVENT DATE: 20140321
